FAERS Safety Report 7308811-X (Version None)
Quarter: 2011Q1

REPORT INFORMATION
  Report Type: 
  Country: None (occurrence: None)
  Receive Date: 20110223
  Receipt Date: 20110217
  Transmission Date: 20110831
  Serious: Yes (Death, Hospitalization)
  Sender: FDA-Public Use
  Company Number: PHHY2011SK11163

PATIENT
  Sex: Female
  Weight: 60 kg

DRUGS (9)
  1. ACLASTA [Suspect]
     Indication: OSTEOPOROSIS POSTMENOPAUSAL
     Dosage: UNK
     Route: 042
     Dates: start: 20110209
  2. CINACALCET [Suspect]
     Dosage: 30 MG, 2X DAILY
     Route: 048
     Dates: start: 20100505
  3. PK-MERZ [Concomitant]
     Indication: PARKINSONISM
     Route: 048
  4. ALPHA D3 [Suspect]
     Indication: OSTEOPOROSIS
     Dosage: UNK
     Route: 048
     Dates: start: 20101101
  5. PRESTARIUM [Concomitant]
     Indication: HYPERTENSION
     Dosage: 5 MG,
     Route: 048
     Dates: start: 20100108, end: 20110210
  6. ANOPYRIN [Concomitant]
     Indication: MYOCARDIAL ISCHAEMIA
     Dosage: 100 MG,
     Route: 048
     Dates: start: 20100108, end: 20110210
  7. PREDUCTAL [Concomitant]
     Indication: MYOCARDIAL ISCHAEMIA
     Dosage: UNK
     Dates: start: 20100108, end: 20110210
  8. FUROSEMID [Suspect]
     Indication: MYOCARDIAL ISCHAEMIA
     Dosage: 40 MG,
     Route: 048
     Dates: start: 20100108
  9. VITAMIN D [Concomitant]

REACTIONS (13)
  - CARDIOPULMONARY FAILURE [None]
  - BRONCHOPNEUMONIA [None]
  - ARTERIOSCLEROSIS [None]
  - MALAISE [None]
  - CHILLS [None]
  - CARDIAC FAILURE [None]
  - DYSPNOEA [None]
  - RENAL FAILURE [None]
  - EMBOLISM ARTERIAL [None]
  - HYPOTENSION [None]
  - CARDIAC DISORDER [None]
  - RENAL FAILURE CHRONIC [None]
  - COMA [None]
